FAERS Safety Report 23775518 (Version 2)
Quarter: 2024Q2

REPORT INFORMATION
  Report Type: Spontaneous
  Country: JP (occurrence: JP)
  Receive Date: 20240423
  Receipt Date: 20240514
  Transmission Date: 20240716
  Serious: Yes (Other)
  Sender: FDA-Public Use
  Company Number: JP-SA-2022SA188885

PATIENT
  Age: 11 Month
  Sex: Male

DRUGS (19)
  1. SABRIL [Suspect]
     Active Substance: VIGABATRIN
     Indication: Infantile spasms
     Dosage: 237.5 MG, BID
     Route: 048
     Dates: start: 20201211, end: 20210420
  2. SABRIL [Suspect]
     Active Substance: VIGABATRIN
     Dosage: 250 MG, BID
     Route: 048
     Dates: start: 20210421, end: 20230221
  3. SABRIL [Suspect]
     Active Substance: VIGABATRIN
     Dosage: 225 MG, BID
     Route: 048
     Dates: start: 20230222, end: 20230321
  4. SABRIL [Suspect]
     Active Substance: VIGABATRIN
     Dosage: 200 MG, BID
     Route: 048
     Dates: start: 20230322, end: 20230528
  5. SABRIL [Suspect]
     Active Substance: VIGABATRIN
     Dosage: 175 MG, BID
     Route: 048
     Dates: start: 20230529, end: 20230627
  6. SABRIL [Suspect]
     Active Substance: VIGABATRIN
     Dosage: 150 MG, BID
     Route: 048
     Dates: start: 20230628, end: 20230725
  7. SABRIL [Suspect]
     Active Substance: VIGABATRIN
     Dosage: 125 MG, BID
     Route: 048
     Dates: start: 20230726, end: 20231121
  8. SABRIL [Suspect]
     Active Substance: VIGABATRIN
     Dosage: 100 MG, BID
     Route: 048
     Dates: start: 20231122, end: 20231226
  9. SABRIL [Suspect]
     Active Substance: VIGABATRIN
     Dosage: 75 MG, BID
     Route: 048
     Dates: start: 20231227, end: 20240130
  10. SABRIL [Suspect]
     Active Substance: VIGABATRIN
     Dosage: 50 MG, BID
     Route: 048
     Dates: start: 20240131, end: 20240305
  11. SABRIL [Suspect]
     Active Substance: VIGABATRIN
     Dosage: 25 MG, BID
     Route: 048
     Dates: start: 20240306, end: 20240410
  12. CARBAMAZEPINE [Concomitant]
     Active Substance: CARBAMAZEPINE
     Indication: Partial seizures
     Dosage: DAILY DOSE: 120 MG
     Route: 048
     Dates: start: 20201211, end: 20201216
  13. CARBAMAZEPINE [Concomitant]
     Active Substance: CARBAMAZEPINE
     Indication: Partial seizures
     Dosage: DAILY DOSE: 80 MG
     Route: 048
     Dates: start: 20201217, end: 20201227
  14. CARBAMAZEPINE [Concomitant]
     Active Substance: CARBAMAZEPINE
     Dosage: DAILY DOSE: 40 MG
     Route: 048
     Dates: start: 20201228, end: 20210125
  15. CARBAMAZEPINE [Concomitant]
     Active Substance: CARBAMAZEPINE
     Dosage: DAILY DOSE: 50 MG
     Route: 048
     Dates: start: 20210318, end: 20210330
  16. CARBAMAZEPINE [Concomitant]
     Active Substance: CARBAMAZEPINE
     Dosage: DAILY DOSE: 100 MG
     Route: 048
     Dates: start: 20210331, end: 20210406
  17. CARBAMAZEPINE [Concomitant]
     Active Substance: CARBAMAZEPINE
     Dosage: DAILY DOSE: 150 MG
     Route: 048
     Dates: start: 20210407, end: 20210505
  18. CARBAMAZEPINE [Concomitant]
     Active Substance: CARBAMAZEPINE
     Dosage: DAILY DOSE: 180 MG
     Route: 048
     Dates: start: 20210506, end: 20210518
  19. CARBAMAZEPINE [Concomitant]
     Active Substance: CARBAMAZEPINE
     Dosage: DAILY DOSE: 220 MG
     Route: 048
     Dates: start: 20210519

REACTIONS (2)
  - Partial seizures [Recovering/Resolving]
  - Condition aggravated [Recovering/Resolving]

NARRATIVE: CASE EVENT DATE: 20210312
